FAERS Safety Report 8618720-1 (Version None)
Quarter: 2012Q3

REPORT INFORMATION
  Report Type: 
  Country: None (occurrence: None)
  Receive Date: 20120824
  Receipt Date: 20120815
  Transmission Date: 20120928
  Serious: Yes (Other)
  Sender: FDA-Public Use
  Company Number: US-JNJFOC-20120306127

PATIENT
  Sex: Female
  Weight: 77.11 kg

DRUGS (12)
  1. AZELASTINE HCL [Concomitant]
     Indication: ASTHMA
     Route: 045
     Dates: start: 20120101
  2. PLAVIX [Concomitant]
     Indication: CEREBROVASCULAR ACCIDENT
     Route: 048
     Dates: start: 20030101
  3. SUMATRIPTAN [Concomitant]
     Indication: MIGRAINE
     Route: 048
     Dates: start: 20000101
  4. METHOTREXATE [Concomitant]
     Indication: RHEUMATOID ARTHRITIS
     Route: 065
  5. DOXEPIN [Concomitant]
     Indication: SLEEP DISORDER
     Route: 048
     Dates: start: 20110101
  6. REMICADE [Suspect]
     Indication: RHEUMATOID ARTHRITIS
     Route: 042
     Dates: start: 20111101
  7. FLUTICASONE PROPIONATE [Concomitant]
     Indication: ASTHMA
     Route: 055
     Dates: start: 20100101
  8. AMBIEN [Concomitant]
     Indication: FIBROMYALGIA
     Route: 065
  9. CELEBREX [Concomitant]
     Indication: RHEUMATOID ARTHRITIS
     Route: 048
     Dates: start: 20100101
  10. VENTOLIN [Concomitant]
     Indication: ASTHMA
     Route: 055
     Dates: start: 20120101
  11. DEXILANT [Concomitant]
     Indication: GASTROOESOPHAGEAL REFLUX DISEASE
     Route: 048
     Dates: start: 20090101
  12. LORTAB [Concomitant]
     Indication: RHEUMATOID ARTHRITIS
     Route: 065

REACTIONS (3)
  - HYPOKINESIA [None]
  - MALAISE [None]
  - FIBROMYALGIA [None]
